FAERS Safety Report 4461555-4 (Version None)
Quarter: 2004Q3

REPORT INFORMATION
  Report Type: 
  Country: None (occurrence: None)
  Receive Date: 20040913
  Receipt Date: 20040618
  Transmission Date: 20050211
  Serious: Yes (Other)
  Sender: FDA-Public Use
  Company Number: 04-245-0818

PATIENT
  Age: 50 Year
  Sex: Female

DRUGS (9)
  1. PACLITAXEL [Suspect]
     Indication: OVARIAN CANCER
     Dosage: 67MG/193MG/264MG
     Route: 042
     Dates: start: 20040420, end: 20040517
  2. CARBOPLATIN [Concomitant]
  3. ZOFRAN [Concomitant]
  4. BENADRYL [Concomitant]
  5. PEPCID [Concomitant]
  6. IRON [Concomitant]
  7. ASPIRIN [Concomitant]
  8. CALCIUM [Concomitant]
  9. GLUCOSAMINE [Concomitant]

REACTIONS (2)
  - ERYTHEMA [None]
  - RASH [None]
